FAERS Safety Report 9562319 (Version 2)
Quarter: 2013Q4

REPORT INFORMATION
  Report Type: Spontaneous
  Country: HR (occurrence: HR)
  Receive Date: 20130927
  Receipt Date: 20131009
  Transmission Date: 20140711
  Serious: Yes (Other)
  Sender: FDA-Public Use
  Company Number: HR-ROCHE-1281815

PATIENT
  Age: 55 Year
  Sex: Female

DRUGS (1)
  1. CAPECITABINE [Suspect]
     Indication: COLON CANCER
     Dosage: 1 G/M2 TWICE A DAY
     Route: 048
     Dates: start: 201209

REACTIONS (1)
  - Stiff person syndrome [Recovering/Resolving]
